FAERS Safety Report 9988196 (Version 2)
Quarter: 2014Q1

REPORT INFORMATION
  Report Type: Spontaneous
  Country: US (occurrence: US)
  Receive Date: 20140309
  Receipt Date: 20140309
  Transmission Date: 20141002
  Serious: Yes (Other)
  Sender: FDA-Public Use
  Company Number: US-GE HEALTHCARE MEDICAL DIAGNOSTICS-OSCN-PR-0912S-0526

PATIENT
  Age: 28 Year
  Sex: Female

DRUGS (50)
  1. OMNISCAN [Suspect]
     Indication: RENAL FAILURE
     Route: 042
     Dates: start: 20020825, end: 20020825
  2. OMNISCAN [Suspect]
     Indication: CEREBROVASCULAR ACCIDENT
     Route: 042
     Dates: start: 20020712, end: 20020712
  3. OMNISCAN [Suspect]
     Indication: INFARCTION
     Route: 042
     Dates: start: 20021204, end: 20021204
  4. OMNISCAN [Suspect]
     Indication: PULMONARY HILUM MASS
     Route: 042
     Dates: start: 20021211, end: 20021211
  5. OMNISCAN [Suspect]
     Indication: BRAIN MASS
     Route: 042
     Dates: start: 20031101, end: 20031101
  6. OMNISCAN [Suspect]
     Indication: SEPSIS
     Route: 042
     Dates: start: 20040916, end: 20040916
  7. OMNISCAN [Suspect]
     Indication: SYSTEMIC LUPUS ERYTHEMATOSUS
  8. OMNISCAN [Suspect]
     Indication: HEADACHE
  9. OMNISCAN [Suspect]
     Indication: VERTIGO
  10. OMNISCAN [Suspect]
     Indication: VASCULITIS
  11. GADOLINIUM (UNSPECIFIED) [Suspect]
     Indication: CENTRAL NERVOUS SYSTEM LESION
     Route: 042
     Dates: start: 19971003, end: 19971003
  12. GADOLINIUM (UNSPECIFIED) [Suspect]
     Indication: DYSARTHRIA
     Route: 042
     Dates: start: 19990216, end: 19990216
  13. GADOLINIUM (UNSPECIFIED) [Suspect]
     Indication: MUSCLE TWITCHING
  14. GADOLINIUM (UNSPECIFIED) [Suspect]
     Indication: RENAL FAILURE
  15. GADOLINIUM (UNSPECIFIED) [Suspect]
     Indication: CEREBRAL INFARCTION
  16. GADOLINIUM (UNSPECIFIED) [Suspect]
     Indication: VERTIGO
  17. COUMADIN [Concomitant]
     Indication: ATRIAL FIBRILLATION
     Dates: start: 1997, end: 2009
  18. AMIODARONE [Concomitant]
     Indication: PRODUCT USED FOR UNKNOWN INDICATION
     Dates: start: 2000, end: 2010
  19. CELLCEPT [Concomitant]
     Indication: TRANSPLANT
     Dates: start: 2002, end: 2009
  20. DANAZOL [Concomitant]
     Indication: ENDOMETRIOSIS
     Dates: start: 1997, end: 2002
  21. DIOVAN [Concomitant]
     Indication: HYPERTENSION
     Dates: start: 2009, end: 2010
  22. ENALAPRIL [Concomitant]
     Indication: HYPERTENSION
     Dates: start: 2009
  23. EPOGEN [Concomitant]
     Indication: PRODUCT USED FOR UNKNOWN INDICATION
     Dates: start: 1999, end: 2002
  24. FERROUS SULFATE [Concomitant]
     Indication: PRODUCT USED FOR UNKNOWN INDICATION
     Dates: start: 2009, end: 2010
  25. GLEEVAC [Concomitant]
     Indication: NEPHROGENIC SYSTEMIC FIBROSIS
     Dates: start: 2009, end: 2010
  26. ISORDIL [Concomitant]
     Indication: CARDIOVASCULAR EVENT PROPHYLAXIS
     Dates: start: 2009
  27. LYRICA [Concomitant]
     Indication: HEADACHE
     Dates: start: 20051026, end: 2010
  28. PREDNISONE [Concomitant]
     Indication: TRANSPLANT
     Dates: start: 1991, end: 2010
  29. PROGRAF [Concomitant]
     Indication: TRANSPLANT
     Dates: start: 2002, end: 2010
  30. REQUIP [Concomitant]
     Indication: RESTLESS LEGS SYNDROME
     Dates: start: 2008, end: 2010
  31. SEROQUEL [Concomitant]
     Indication: PRODUCT USED FOR UNKNOWN INDICATION
     Dates: start: 2010
  32. VANCOMYCIN [Concomitant]
     Indication: STAPHYLOCOCCAL INFECTION
     Dates: start: 1999, end: 2002
  33. VENOFER [Concomitant]
     Indication: PRODUCT USED FOR UNKNOWN INDICATION
     Route: 042
     Dates: start: 20090323
  34. MYFORTIC [Concomitant]
     Indication: TRANSPLANT
  35. PROCARDIA XL [Concomitant]
     Indication: PRODUCT USED FOR UNKNOWN INDICATION
  36. FOLIC ACID [Concomitant]
     Indication: PRODUCT USED FOR UNKNOWN INDICATION
  37. PHOSLO [Concomitant]
     Indication: PRODUCT USED FOR UNKNOWN INDICATION
  38. HALDOL [Concomitant]
     Indication: PRODUCT USED FOR UNKNOWN INDICATION
     Route: 048
     Dates: start: 19970930, end: 1997
  39. VINCRISTINE [Concomitant]
     Indication: PRODUCT USED FOR UNKNOWN INDICATION
     Dates: start: 19971106
  40. PREVACID [Concomitant]
     Indication: GASTROOESOPHAGEAL REFLUX DISEASE
  41. DIGOXIN [Concomitant]
     Indication: ATRIAL FIBRILLATION
  42. DIGOXIN [Concomitant]
     Indication: CARDIAC FAILURE CONGESTIVE
  43. TYLENOL [Concomitant]
     Indication: PRODUCT USED FOR UNKNOWN INDICATION
  44. CALCIUM [Concomitant]
     Indication: PRODUCT USED FOR UNKNOWN INDICATION
  45. ZOSYN [Concomitant]
     Indication: PYREXIA
     Dates: start: 20020818
  46. MULTIVITAMIN [Concomitant]
     Indication: PRODUCT USED FOR UNKNOWN INDICATION
  47. LASIX [Concomitant]
     Indication: PRODUCT USED FOR UNKNOWN INDICATION
  48. NITROSTAT [Concomitant]
     Indication: PRODUCT USED FOR UNKNOWN INDICATION
  49. TOBRAMYCIN [Concomitant]
     Indication: INFECTION
  50. ZITHROMAX [Concomitant]
     Indication: INFECTION

REACTIONS (3)
  - Nephrogenic systemic fibrosis [Not Recovered/Not Resolved]
  - Abortion spontaneous [Recovered/Resolved]
  - Exposure during pregnancy [Recovered/Resolved]
